FAERS Safety Report 4927816-7 (Version None)
Quarter: 2006Q1

REPORT INFORMATION
  Report Type: 
  Country: None (occurrence: None)
  Receive Date: 20060228
  Receipt Date: 20060220
  Transmission Date: 20060701
  Serious: Yes (Other)
  Sender: FDA-Public Use
  Company Number: PHBS2006JP02635

PATIENT
  Age: 53 Year
  Sex: Female

DRUGS (4)
  1. STARSIS [Suspect]
     Indication: DIABETES MELLITUS
     Dosage: 270 MG/DAY
     Route: 048
     Dates: start: 20051205, end: 20051218
  2. MITIGLINIDE [Suspect]
     Dosage: 30 MG/DAY
     Route: 048
     Dates: start: 20051220, end: 20051230
  3. FERROMIA [Concomitant]
     Dosage: 50 MG, UNK
  4. MELBIN [Concomitant]

REACTIONS (5)
  - DIABETES MELLITUS INADEQUATE CONTROL [None]
  - HAEMATOCRIT DECREASED [None]
  - PANCYTOPENIA [None]
  - RED BLOOD CELL COUNT DECREASED [None]
  - WHITE BLOOD CELL COUNT DECREASED [None]
